FAERS Safety Report 6971937 (Version 3)
Quarter: 2013Q2

REPORT INFORMATION
  Report Type: Spontaneous
  Country: US (occurrence: US)
  Receive Date: 20090417
  Receipt Date: 20130410
  Transmission Date: 20140414
  Serious: Yes (Other)
  Sender: FDA-Public Use
  Company Number: US-RB-006844-08

PATIENT
  Age: 34 Year
  Sex: Female

DRUGS (12)
  1. SUBUTEX [Suspect]
     Indication: DRUG ABUSE
     Route: 060
     Dates: start: 20080930, end: 20090128
  2. SUBUTEX [Suspect]
     Route: 060
     Dates: start: 20090129
  3. PERCOCET [Suspect]
     Indication: PAIN
     Dosage: 1-2 TABS EVERY 4 HOURS AS NEEDED FOR PAIN
     Route: 048
     Dates: start: 20081128
  4. FLINTSTONES MULTIVITAMIN [Concomitant]
     Indication: PRODUCT USED FOR UNKNOWN INDICATION
     Dosage: 1 TABLET DAILY
     Route: 048
     Dates: start: 20050109, end: 20090128
  5. CALCIUM [Concomitant]
     Indication: PRODUCT USED FOR UNKNOWN INDICATION
     Route: 048
     Dates: start: 20050109
  6. MACRODANTIN [Concomitant]
     Indication: PRODUCT USED FOR UNKNOWN INDICATION
     Route: 048
     Dates: start: 20081003, end: 20081010
  7. MACRODANTIN [Concomitant]
     Route: 048
     Dates: start: 20090209, end: 20090215
  8. DIFLUCAN [Concomitant]
     Indication: PRODUCT USED FOR UNKNOWN INDICATION
     Route: 048
     Dates: start: 20081027
  9. DOCUSATE SODIUM [Concomitant]
     Indication: PRODUCT USED FOR UNKNOWN INDICATION
     Route: 048
     Dates: start: 20081027
  10. CITRUCEL POWDER [Concomitant]
     Indication: PRODUCT USED FOR UNKNOWN INDICATION
     Dosage: 1 TABLESPOON TWICE DAILY
     Route: 048
     Dates: start: 20081027
  11. AMOXICILLIN [Concomitant]
     Indication: PRODUCT USED FOR UNKNOWN INDICATION
     Route: 048
     Dates: start: 20081128
  12. PRENATAL VITAMINS [Concomitant]
     Indication: PRODUCT USED FOR UNKNOWN INDICATION
     Dosage: ONE TABLET DAILY
     Route: 048
     Dates: start: 20090129

REACTIONS (2)
  - Exposure during pregnancy [Recovered/Resolved]
  - Premature delivery [Recovered/Resolved]
